FAERS Safety Report 5931601-7 (Version None)
Quarter: 2008Q4

REPORT INFORMATION
  Report Type: 
  Country: None (occurrence: None)
  Receive Date: 20081027
  Receipt Date: 20081014
  Transmission Date: 20090506
  Serious: Yes (Hospitalization)
  Sender: FDA-Public Use
  Company Number: FR-ELI_LILLY_AND_COMPANY-FR200808001882

PATIENT
  Sex: Female
  Weight: 80 kg

DRUGS (15)
  1. FORTEO [Suspect]
     Indication: OSTEOPOROSIS
     Dosage: 20 UG, UNKNOWN
     Route: 058
     Dates: start: 20071021, end: 20080803
  2. CORTANCYL [Concomitant]
     Indication: ARTHRITIS
     Dosage: 10 MG, DAILY (1/D)
     Route: 048
     Dates: start: 20000101
  3. INIPOMP [Concomitant]
     Indication: PROPHYLAXIS
     Dosage: 20 MG, DAILY (1/D)
     Route: 048
     Dates: start: 20080101
  4. SKENAN [Concomitant]
     Indication: PAIN
     Dosage: UNK, UNKNOWN
     Route: 048
  5. MORPHINE [Concomitant]
     Indication: PAIN
     Dosage: UNK, UNKNOWN
     Route: 048
  6. MOTILIUM [Concomitant]
     Indication: VOMITING
     Dosage: UNK, UNKNOWN
     Route: 048
  7. ENDOXAN [Concomitant]
     Indication: SJOGREN'S SYNDROME
     Dosage: UNK, UNKNOWN
     Route: 042
     Dates: start: 20080124, end: 20080616
  8. ACETAMINOPHEN [Concomitant]
     Indication: PAIN
     Dosage: 3 G, DAILY (1/D)
     Route: 048
  9. IPRATROPIUM BROMIDE [Concomitant]
     Indication: BRONCHOPNEUMOPATHY
     Dosage: UNK, UNKNOWN
     Route: 055
  10. COAPROVEL [Concomitant]
     Indication: HYPERTENSION
     Dosage: UNK, UNKNOWN
     Route: 065
  11. TRAMADOL HCL [Concomitant]
     Indication: PAIN
     Dosage: 200 MG, DAILY (1/D)
     Route: 048
  12. SEROPRAM [Concomitant]
     Indication: DEPRESSION
     Dosage: 20 MG, DAILY (1/D)
     Route: 048
  13. LYRICA [Concomitant]
     Dosage: UNK, UNKNOWN
     Route: 065
  14. PREVISCAN [Concomitant]
     Dosage: UNK, UNKNOWN
     Route: 065
  15. OROCAL D(3) [Concomitant]
     Dosage: UNK, UNKNOWN
     Route: 065

REACTIONS (2)
  - ANAEMIA [None]
  - STAPHYLOCOCCAL SEPSIS [None]
